FAERS Safety Report 25585233 (Version 6)
Quarter: 2025Q3

REPORT INFORMATION
  Report Type: Spontaneous
  Country: JP (occurrence: JP)
  Receive Date: 20250721
  Receipt Date: 20250919
  Transmission Date: 20251021
  Serious: Yes (Life-Threatening, Hospitalization, Other)
  Sender: PFIZER
  Company Number: JP-MLMSERVICE-20250708-PI569619-00270-1

PATIENT
  Age: 63 Year
  Sex: Male

DRUGS (7)
  1. METHYLPREDNISOLONE SODIUM SUCCINATE [Suspect]
     Active Substance: METHYLPREDNISOLONE SODIUM SUCCINATE
     Indication: Haemophagocytic lymphohistiocytosis
     Dosage: 1000 MG, 1X/DAY (HIGH-DOSE CORTICOSTEROIDS)
     Route: 042
  2. METHYLPREDNISOLONE SODIUM SUCCINATE [Suspect]
     Active Substance: METHYLPREDNISOLONE SODIUM SUCCINATE
     Dosage: 60 MG, 1X/DAY (TAPERED TO 60 MG/DAY (1 MG/KG EQUIVALENT))
     Route: 042
  3. METHYLPREDNISOLONE SODIUM SUCCINATE [Suspect]
     Active Substance: METHYLPREDNISOLONE SODIUM SUCCINATE
     Dosage: 5 MG, 1X/DAY
     Route: 042
  4. MYCOPHENOLATE MOFETIL [Suspect]
     Active Substance: MYCOPHENOLATE MOFETIL
     Indication: Haemophagocytic lymphohistiocytosis
     Dosage: 1000 MG, 1X/DAY
  5. MYCOPHENOLATE MOFETIL [Suspect]
     Active Substance: MYCOPHENOLATE MOFETIL
     Dosage: 2000 MG, 1X/DAY (ESCALATED TO 2000 MG/DAY) OVER 3 DAYS
  6. PEMBROLIZUMAB [Concomitant]
     Active Substance: PEMBROLIZUMAB
     Indication: Metastatic renal cell carcinoma
  7. LENVATINIB [Concomitant]
     Active Substance: LENVATINIB
     Indication: Metastatic renal cell carcinoma

REACTIONS (4)
  - Myelosuppression [Recovering/Resolving]
  - Pancytopenia [Recovering/Resolving]
  - Cytomegalovirus infection [Recovering/Resolving]
  - Off label use [Unknown]
